FAERS Safety Report 23848308 (Version 1)
Quarter: 2024Q2

REPORT INFORMATION
  Report Type: Spontaneous
  Country: US (occurrence: None)
  Receive Date: 20240510
  Receipt Date: 20240510
  Transmission Date: 20240716
  Serious: Yes (Death)
  Sender: FDA-Public Use
  Company Number: None

PATIENT
  Age: 75 Year
  Sex: Female
  Weight: 50.4 kg

DRUGS (4)
  1. LYNPARZA [Suspect]
     Active Substance: OLAPARIB
     Indication: Ovarian cancer
     Dosage: FREQUENCY : TWICE A DAY;?
     Route: 048
  2. Insulin pump (Dexcom) [Concomitant]
  3. THYROID [Concomitant]
     Active Substance: LEVOTHYROXINE\LIOTHYRONINE
  4. SIMVASTATIN [Concomitant]
     Active Substance: SIMVASTATIN

REACTIONS (8)
  - Myelodysplastic syndrome [None]
  - Febrile neutropenia [None]
  - Haemophagocytic lymphohistiocytosis [None]
  - Blood glucose decreased [None]
  - Hepatitis [None]
  - Pleural effusion [None]
  - Lung infiltration [None]
  - Metabolic acidosis [None]

NARRATIVE: CASE EVENT DATE: 20240321
